FAERS Safety Report 9767166 (Version 3)
Quarter: 2014Q2

REPORT INFORMATION
  Report Type: Spontaneous
  Country: US (occurrence: US)
  Receive Date: 20131217
  Receipt Date: 20140528
  Transmission Date: 20141212
  Serious: Yes (Death, Hospitalization)
  Sender: FDA-Public Use
  Company Number: US-B.I. PHARMACEUTICALS,INC./RIDGEFIELD-2013-BI-42238BP

PATIENT
  Age: 79 Year
  Sex: Male

DRUGS (19)
  1. SPIRIVA [Suspect]
     Indication: CHRONIC OBSTRUCTIVE PULMONARY DISEASE
     Dosage: 18 MCG
     Route: 055
     Dates: start: 201304, end: 201304
  2. NIASPAN [Concomitant]
     Dosage: 1000 MG
     Route: 065
  3. PANTOPRAZOLE [Concomitant]
     Dosage: 40 MG
     Route: 065
  4. PREDNISONE [Concomitant]
     Dosage: 10 MG
     Route: 065
  5. PROAIR HFA [Concomitant]
     Dosage: 4.32 NR
     Route: 065
  6. PRAMADOL [Concomitant]
     Route: 065
  7. TRAMADOL [Concomitant]
     Dosage: 150 MG
     Route: 065
  8. XANAX [Concomitant]
     Dosage: 1 MG
     Route: 065
  9. AMIODARONE [Concomitant]
     Dosage: 400 MG
     Route: 065
  10. ATORVASTATIN [Concomitant]
     Route: 065
  11. COREG [Concomitant]
     Dosage: 50 MG
     Route: 065
  12. ELIQUIS [Concomitant]
     Dosage: 5 MG
     Route: 065
  13. FERROUS SULFATE [Concomitant]
     Dosage: 648 ANZ
     Route: 065
  14. FLOMAX [Concomitant]
     Dosage: 0.4 MG
     Route: 065
  15. ISOSORBIDE [Concomitant]
     Dosage: 120 MG
     Route: 065
  16. LASIX [Concomitant]
     Dosage: 20 MG
     Route: 065
  17. LEVOTHYROXINE [Concomitant]
     Dosage: 88 MCG
     Route: 065
  18. LOSARTAN [Concomitant]
     Dosage: 25 MG
     Route: 065
  19. MECLIZINE [Concomitant]
     Dosage: 75 MG
     Route: 065

REACTIONS (1)
  - Myocardial infarction [Fatal]
